FAERS Safety Report 5584733-X (Version None)
Quarter: 2008Q1

REPORT INFORMATION
  Report Type: 
  Country: None (occurrence: None)
  Receive Date: 20080108
  Receipt Date: 20080102
  Transmission Date: 20080703
  Serious: Yes (Hospitalization, Other)
  Sender: FDA-Public Use
  Company Number: US-PFIZER INC-2008000736

PATIENT
  Sex: Male

DRUGS (4)
  1. XANAX [Suspect]
     Route: 048
  2. ZOLOFT [Concomitant]
  3. TRAZODONE HCL [Concomitant]
  4. DOXEPIN HCL [Concomitant]

REACTIONS (15)
  - ANXIETY [None]
  - DIPLOPIA [None]
  - DRUG DEPENDENCE [None]
  - DYSPNOEA [None]
  - FALL [None]
  - FEELING ABNORMAL [None]
  - HAND FRACTURE [None]
  - HEAD INJURY [None]
  - IMPAIRED DRIVING ABILITY [None]
  - PRIAPISM [None]
  - ROAD TRAFFIC ACCIDENT [None]
  - SYNCOPE [None]
  - TINNITUS [None]
  - VERTIGO [None]
  - VOMITING [None]
